FAERS Safety Report 6152406-0 (Version None)
Quarter: 2009Q2

REPORT INFORMATION
  Report Type: 
  Country: None (occurrence: None)
  Receive Date: 20090409
  Receipt Date: 20090403
  Transmission Date: 20091009
  Serious: Yes (Death)
  Sender: FDA-Public Use
  Company Number: 2009JP001917

PATIENT
  Age: 4 Year
  Sex: Female

DRUGS (3)
  1. PROGRAF [Suspect]
     Indication: LIVER TRANSPLANT
  2. STEROID FORMULATION [Concomitant]
  3. RITUXIMAB (RITUXIMAB) [Concomitant]

REACTIONS (2)
  - COMPLICATIONS OF TRANSPLANTED LIVER [None]
  - HEPATIC FAILURE [None]
